FAERS Safety Report 23677464 (Version 1)
Quarter: 2024Q1

REPORT INFORMATION
  Report Type: Spontaneous
  Country: US (occurrence: US)
  Receive Date: 20240327
  Receipt Date: 20240327
  Transmission Date: 20240409
  Serious: No
  Sender: FDA-Public Use
  Company Number: US-PERRIGO-23US005091

PATIENT
  Age: 42 Year
  Sex: Male
  Weight: 104.31 kg

DRUGS (3)
  1. FEXOFENADINE HYDROCHLORIDE [Suspect]
     Active Substance: FEXOFENADINE HYDROCHLORIDE
     Indication: Rhinorrhoea
     Dosage: 180 MG, QHS
     Route: 048
     Dates: start: 2017, end: 20230420
  2. FEXOFENADINE HYDROCHLORIDE [Suspect]
     Active Substance: FEXOFENADINE HYDROCHLORIDE
     Indication: Nasal congestion
     Dosage: 180 MG, QAM
     Route: 048
     Dates: start: 20230421, end: 20230421
  3. FEXOFENADINE HYDROCHLORIDE [Suspect]
     Active Substance: FEXOFENADINE HYDROCHLORIDE
     Indication: Accidental exposure to product
     Dosage: 180 MG, QHS
     Route: 048
     Dates: start: 20230422

REACTIONS (2)
  - Off label use [Recovered/Resolved]
  - Wrong product administered [Recovered/Resolved]

NARRATIVE: CASE EVENT DATE: 20230421
